FAERS Safety Report 7115931-1 (Version None)
Quarter: 2010Q4

REPORT INFORMATION
  Report Type: 
  Country: None (occurrence: None)
  Receive Date: 20101122
  Receipt Date: 20101108
  Transmission Date: 20110411
  Serious: Yes (Hospitalization)
  Sender: FDA-Public Use
  Company Number: US-BAYER-201027941NA

PATIENT
  Age: 48 Year
  Sex: Female
  Weight: 69 kg

DRUGS (24)
  1. YASMIN [Suspect]
     Indication: ACNE
     Route: 048
     Dates: start: 20060601, end: 20060623
  2. LISINOPRIL [Concomitant]
     Indication: PRODUCT USED FOR UNKNOWN INDICATION
     Dates: start: 20060127
  3. TRAMADOL HCL [Concomitant]
     Indication: FIBROMYALGIA
     Dosage: UNIT DOSE: 50 MG
     Route: 048
     Dates: start: 19970101
  4. ALBUTEROL [Concomitant]
     Indication: ASTHMA
  5. ATROVENT [Concomitant]
     Indication: ASTHMA
     Dosage: 0.03%
     Dates: start: 20050901, end: 20070601
  6. PULMICORT FLEXHALER [Concomitant]
     Indication: ASTHMA
     Dates: start: 20050501
  7. CLONIDINE [Concomitant]
     Indication: HYPERTENSION
     Dates: start: 20050501
  8. HYDROCHLOROTHIAZIDE [Concomitant]
     Indication: HYPERTENSION
     Dates: start: 20060101, end: 20090101
  9. AMBIEN [Concomitant]
     Indication: INSOMNIA
     Dates: start: 20010101
  10. METOPROLOL TARTRATE [Concomitant]
     Indication: PRODUCT USED FOR UNKNOWN INDICATION
  11. CYCLOBENZAPRINE [Concomitant]
     Indication: MUSCLE RELAXANT THERAPY
     Dates: start: 20050101
  12. DOXYCYCLINE HYCLATE [Concomitant]
     Indication: ACNE
     Dosage: UNIT DOSE: 100 MG
     Dates: start: 19990101, end: 20080101
  13. FEXOFENADINE [Concomitant]
     Indication: MULTIPLE ALLERGIES
     Dates: start: 20060101, end: 20090101
  14. HYOSCYAMINE [Concomitant]
     Indication: GASTROINTESTINAL PAIN
     Dates: start: 20060101, end: 20080101
  15. NEXIUM [Concomitant]
     Indication: PEPTIC ULCER
     Dosage: UNIT DOSE: 40 MG
     Dates: start: 20050101
  16. PREMARIN [Concomitant]
     Indication: PRODUCT USED FOR UNKNOWN INDICATION
     Dates: start: 20060101
  17. PREVACID [Concomitant]
     Indication: PEPTIC ULCER
     Dosage: UNIT DOSE: 30 MG
     Dates: start: 20060101, end: 20080101
  18. PROMETHAZINE [Concomitant]
     Indication: HEADACHE
     Dosage: UNIT DOSE: 25 MG
     Dates: start: 20050101, end: 20060101
  19. V-R BISACODYL [Concomitant]
     Indication: CONSTIPATION
     Dates: start: 20050101
  20. VITAMIN D [Concomitant]
     Indication: VITAMIN D DEFICIENCY
     Dates: start: 20050101
  21. TESTOSTERONE CYPIONATE [Concomitant]
     Indication: HYPOGONADISM
     Dosage: UNIT DOSE: 200 MG/ML
     Dates: start: 20050101
  22. WELLBUTRIN SR [Concomitant]
     Indication: PRODUCT USED FOR UNKNOWN INDICATION
     Dosage: 1 IN THE MORNING X 7 DAYS; THEN 2 IN THE MORNING
  23. SPIRONOLACTONE [Concomitant]
     Indication: PRODUCT USED FOR UNKNOWN INDICATION
     Dates: start: 20070314
  24. CLIMARA [Concomitant]
     Indication: MENOPAUSAL SYMPTOMS
     Route: 062
     Dates: start: 20050501, end: 20060601

REACTIONS (5)
  - CELLULITIS STAPHYLOCOCCAL [None]
  - DEEP VEIN THROMBOSIS [None]
  - DYSPNOEA [None]
  - OEDEMA PERIPHERAL [None]
  - PAIN IN EXTREMITY [None]
